FAERS Safety Report 12948957 (Version 1)
Quarter: 2016Q4

REPORT INFORMATION
  Report Type: Spontaneous
  Country: US (occurrence: US)
  Receive Date: 20161116
  Receipt Date: 20161116
  Transmission Date: 20170207
  Serious: No
  Sender: FDA-Public Use
  Company Number: US-UNICHEM LABORATORIES LIMITED-UCM201609-000222

PATIENT
  Sex: Female
  Weight: 69.4 kg

DRUGS (8)
  1. CLONAZEPAM. [Concomitant]
     Active Substance: CLONAZEPAM
  2. SEROQUEL [Concomitant]
     Active Substance: QUETIAPINE FUMARATE
  3. AMLODIPINE [Suspect]
     Active Substance: AMLODIPINE BESYLATE
  4. LACTULOSE SOLUTION [Concomitant]
     Active Substance: LACTULOSE
  5. NOREL [Concomitant]
  6. VITAMIN D3 [Concomitant]
     Active Substance: CHOLECALCIFEROL
  7. TAURINE [Concomitant]
     Active Substance: TAURINE
  8. AMLODIPINE [Suspect]
     Active Substance: AMLODIPINE BESYLATE
     Indication: HYPERTENSION

REACTIONS (3)
  - Dysgeusia [Recovered/Resolved]
  - Product physical issue [Unknown]
  - Drug ineffective [Unknown]
